FAERS Safety Report 7978175-7 (Version None)
Quarter: 2011Q4

REPORT INFORMATION
  Report Type: 
  Country: None (occurrence: None)
  Receive Date: 20111214
  Receipt Date: 20111209
  Transmission Date: 20120403
  Serious: Yes (Death)
  Sender: FDA-Public Use
  Company Number: JP-CELGENEUS-087-21880-11121204

PATIENT
  Sex: Male

DRUGS (1)
  1. REVLIMID [Suspect]
     Indication: MYELOMA RECURRENCE
     Dosage: 5 MILLIGRAM
     Route: 048
     Dates: start: 20110719, end: 20111101

REACTIONS (1)
  - INFECTION [None]
